FAERS Safety Report 4611125-X (Version None)
Quarter: 2005Q1

REPORT INFORMATION
  Report Type: 
  Country: None (occurrence: None)
  Receive Date: 20050317
  Receipt Date: 20050121
  Transmission Date: 20050727
  Serious: Yes (Hospitalization)
  Sender: FDA-Public Use
  Company Number: JP-ABBOTT-05P-087-0288062-00

PATIENT
  Sex: Male
  Weight: 64 kg

DRUGS (6)
  1. KLARICID [Suspect]
     Indication: BRONCHITIS ACUTE
     Route: 048
     Dates: start: 20050117, end: 20050118
  2. KLARICID [Suspect]
     Indication: COUGH
  3. PROCATEROL HCL [Suspect]
     Indication: BRONCHITIS ACUTE
     Route: 048
     Dates: start: 20050117, end: 20050118
  4. CODEINE PHOSPHATE [Concomitant]
     Indication: BRONCHITIS ACUTE
     Route: 048
     Dates: start: 20050117, end: 20050121
  5. MAGNESIUM OXIDE [Concomitant]
     Indication: BRONCHITIS ACUTE
     Route: 048
     Dates: start: 20050117, end: 20050121
  6. CLEMASTINE FUMARATE [Concomitant]
     Indication: BRONCHITIS ACUTE
     Route: 048
     Dates: start: 20050117, end: 20050118

REACTIONS (6)
  - ASTHENIA [None]
  - DIFFICULTY IN WALKING [None]
  - MUSCULAR WEAKNESS [None]
  - MYALGIA [None]
  - PAIN IN EXTREMITY [None]
  - RHABDOMYOLYSIS [None]
